FAERS Safety Report 22005450 (Version 1)
Quarter: 2023Q1

REPORT INFORMATION
  Report Type: Other
  Country: SE (occurrence: SE)
  Receive Date: 20230217
  Receipt Date: 20230217
  Transmission Date: 20230417
  Serious: Yes (Other)
  Sender: FDA-Public Use
  Company Number: None

PATIENT
  Age: 55 Year
  Sex: Female

DRUGS (3)
  1. DATSCAN [Interacting]
     Active Substance: IODINE\IOFLUPANE I-123
     Indication: Dopamine transporter scintigraphy
     Dosage: UNK UNK, SINGLE
     Route: 065
     Dates: start: 20210204, end: 20210204
  2. DATSCAN [Interacting]
     Active Substance: IODINE\IOFLUPANE I-123
     Indication: Product used for unknown indication
  3. ISOPTIN [Interacting]
     Active Substance: VERAPAMIL HYDROCHLORIDE
     Indication: Hypertension
     Dosage: 40 MG, BID
     Route: 048

REACTIONS (2)
  - Radioisotope uptake increased [Recovered/Resolved]
  - Drug interaction [Recovered/Resolved]

NARRATIVE: CASE EVENT DATE: 20210204
